FAERS Safety Report 8554094-2 (Version None)
Quarter: 2012Q3

REPORT INFORMATION
  Report Type: 
  Country: None (occurrence: None)
  Receive Date: 20120731
  Receipt Date: 20120725
  Transmission Date: 20120928
  Serious: Yes (Other)
  Sender: FDA-Public Use
  Company Number: PHHY2012CA047682

PATIENT
  Sex: Female

DRUGS (1)
  1. GILENYA [Suspect]
     Indication: RELAPSING-REMITTING MULTIPLE SCLEROSIS
     Dosage: 0.5 MG, QD
     Route: 048
     Dates: start: 20111027

REACTIONS (8)
  - VERTIGO [None]
  - VISUAL ACUITY REDUCED [None]
  - VISION BLURRED [None]
  - ANXIETY [None]
  - FATIGUE [None]
  - DIZZINESS [None]
  - GLAUCOMA [None]
  - INSOMNIA [None]
